FAERS Safety Report 9564900 (Version 3)
Quarter: 2013Q4

REPORT INFORMATION
  Report Type: Spontaneous
  Country: JP (occurrence: JP)
  Receive Date: 20130930
  Receipt Date: 20131213
  Transmission Date: 20140711
  Serious: Yes (Hospitalization, Other)
  Sender: FDA-Public Use
  Company Number: JP-PFIZER INC-2013275570

PATIENT
  Sex: 0

DRUGS (1)
  1. CORTRIL [Suspect]
     Dosage: UNK
     Route: 048

REACTIONS (1)
  - Ileus [Recovered/Resolved]
